FAERS Safety Report 11971681 (Version 1)
Quarter: 2016Q1

REPORT INFORMATION
  Report Type: Spontaneous
  Country: US (occurrence: US)
  Receive Date: 20160128
  Receipt Date: 20160128
  Transmission Date: 20160526
  Serious: Yes (Other)
  Sender: FDA-Public Use
  Company Number: US-BAYER-2016-015858

PATIENT
  Age: 67 Year
  Sex: Male

DRUGS (2)
  1. ACETYLSALICYLIC ACID (} 100 MG) [Suspect]
     Active Substance: ASPIRIN
     Dosage: 81 MG, QD
  2. NAPROXEN SODIUM ({= 220 MG) [Suspect]
     Active Substance: NAPROXEN SODIUM
     Dosage: UNK UNK, PRN

REACTIONS (2)
  - Gastrointestinal fistula [Recovering/Resolving]
  - Peptic ulcer [Recovering/Resolving]
